FAERS Safety Report 5325813-3 (Version None)
Quarter: 2007Q2

REPORT INFORMATION
  Report Type: 
  Country: None (occurrence: None)
  Receive Date: 20070510
  Receipt Date: 20070504
  Transmission Date: 20071010
  Serious: Yes (Hospitalization)
  Sender: FDA-Public Use
  Company Number: 2007-02228

PATIENT
  Age: 25 Year
  Sex: Male

DRUGS (4)
  1. QUININE SULFATE [Suspect]
     Indication: JAUNDICE
     Dosage: 500 MG, Q8H X30 HRS, INTRAVENOUS
     Route: 042
     Dates: start: 20070101
  2. QUININE SULFATE [Suspect]
     Indication: MALARIA
     Dosage: 500 MG, Q8H X30 HRS, INTRAVENOUS
     Route: 042
     Dates: start: 20070101
  3. METOCLOPRAMIDE [Concomitant]
  4. PHYTONADIONE [Concomitant]

REACTIONS (5)
  - ARRHYTHMIA [None]
  - EXTRASYSTOLES [None]
  - PALPITATIONS [None]
  - SINOATRIAL BLOCK [None]
  - VENTRICULAR EXTRASYSTOLES [None]
